FAERS Safety Report 8785169 (Version 1)
Quarter: 2012Q4

REPORT INFORMATION
  Report Type: 
  Country: US (occurrence: US)
  Receive Date: 20120914
  Receipt Date: 20120914
  Transmission Date: 20130627
  Serious: No
  Sender: FDA-Public Use
  Company Number: US-009507513-1208USA003523

PATIENT

DRUGS (3)
  1. VICTRELIS [Suspect]
     Indication: HEPATITIS C
     Dosage: UNK
     Dates: start: 20120803
  2. REBETOL [Suspect]
     Indication: HEPATITIS C
     Dosage: UNK
     Dates: start: 20120706
  3. PEGASYS [Concomitant]
     Indication: HEPATITIS C
     Dosage: UNK
     Dates: start: 20120706

REACTIONS (11)
  - Nocturia [Unknown]
  - Candidiasis [Unknown]
  - White blood cell count decreased [Unknown]
  - Nocturia [Unknown]
  - Cough [Unknown]
  - Insomnia [Unknown]
  - Nausea [Unknown]
  - Haemoglobin decreased [Unknown]
  - Fatigue [Unknown]
  - Rash [Unknown]
  - Dysgeusia [Unknown]
